FAERS Safety Report 17440263 (Version 5)
Quarter: 2021Q2

REPORT INFORMATION
  Report Type: Spontaneous
  Country: US (occurrence: US)
  Receive Date: 20200220
  Receipt Date: 20210401
  Transmission Date: 20210716
  Serious: No
  Sender: FDA-Public Use
  Company Number: US-PFIZER INC-2020075883

PATIENT
  Age: 61 Year
  Sex: Female

DRUGS (2)
  1. XELJANZ XR [Suspect]
     Active Substance: TOFACITINIB CITRATE
     Indication: RHEUMATOID ARTHRITIS
     Dosage: 11 MG, DAILY
     Route: 048
     Dates: start: 201908
  2. XELJANZ XR [Suspect]
     Active Substance: TOFACITINIB CITRATE
     Dosage: 11 MG, WEEKLY
     Route: 048
     Dates: start: 201908

REACTIONS (10)
  - Product dose omission issue [Unknown]
  - Off label use [Unknown]
  - Depression [Unknown]
  - Frustration tolerance decreased [Unknown]
  - Condition aggravated [Unknown]
  - Cystitis [Unknown]
  - Gingival ulceration [Unknown]
  - Mouth ulceration [Unknown]
  - Disease recurrence [Unknown]
  - Tooth loss [Unknown]

NARRATIVE: CASE EVENT DATE: 201908
